FAERS Safety Report 4435836-4 (Version None)
Quarter: 2004Q3

REPORT INFORMATION
  Report Type: 
  Country: None (occurrence: None)
  Receive Date: 20040826
  Receipt Date: 20040817
  Transmission Date: 20050211
  Serious: Yes (Other)
  Sender: FDA-Public Use
  Company Number: 2004229106US

PATIENT
  Age: 60 Year
  Sex: Female

DRUGS (2)
  1. PROVERA [Suspect]
     Dates: start: 19940101, end: 19960101
  2. PREMARIN [Suspect]
     Dates: start: 19940101, end: 19960101

REACTIONS (2)
  - BREAST CANCER FEMALE [None]
  - MYOCARDIAL INFARCTION [None]
